FAERS Safety Report 9207264 (Version 1)
Quarter: 2013Q2

REPORT INFORMATION
  Report Type: Spontaneous
  Country: CA (occurrence: CA)
  Receive Date: 20130403
  Receipt Date: 20130403
  Transmission Date: 20140414
  Serious: Yes (Death, Hospitalization)
  Sender: FDA-Public Use
  Company Number: CA-B.I. PHARMACEUTICALS,INC./RIDGEFIELD-2013-CN-00511CN

PATIENT
  Sex: Female

DRUGS (3)
  1. PRADAXA [Suspect]
  2. PLAVIX [Concomitant]
  3. ASA [Concomitant]

REACTIONS (2)
  - Haemorrhage [Fatal]
  - Hip fracture [Unknown]
